FAERS Safety Report 14186912 (Version 1)
Quarter: 2017Q4

REPORT INFORMATION
  Report Type: Spontaneous
  Country: US (occurrence: US)
  Receive Date: 20171113
  Receipt Date: 20171113
  Transmission Date: 20180321
  Serious: Yes (Other)
  Sender: FDA-Public Use
  Company Number: None

PATIENT
  Sex: Male

DRUGS (15)
  1. LIDOCAINE. [Concomitant]
     Active Substance: LIDOCAINE
  2. HYDROCORTISONE CREAM [Concomitant]
     Active Substance: HYDROCORTISONE
  3. CARBAMAZEPINE. [Concomitant]
     Active Substance: CARBAMAZEPINE
  4. NORCO [Concomitant]
     Active Substance: ACETAMINOPHEN\HYDROCODONE BITARTRATE
  5. PORMETHAZINE [Concomitant]
  6. ZOLPIDEM [Concomitant]
     Active Substance: ZOLPIDEM\ZOLPIDEM TARTRATE
  7. BUTRANS [Suspect]
     Active Substance: BUPRENORPHINE
     Indication: TRIGEMINAL NEURALGIA
     Dosage: ?          OTHER STRENGTH:MCG/HOUR;QUANTITY:4 PATCH(ES);OTHER FREQUENCY:EVERY 7 DAYS;?
     Route: 062
     Dates: start: 20171031
  8. ZOFRAN [Concomitant]
     Active Substance: ONDANSETRON HYDROCHLORIDE
  9. DHE NASAL SPRAY [Concomitant]
  10. IBUPROFEN. [Concomitant]
     Active Substance: IBUPROFEN
  11. DILAUDID [Concomitant]
     Active Substance: HYDROMORPHONE HYDROCHLORIDE
  12. MAXALT [Concomitant]
     Active Substance: RIZATRIPTAN BENZOATE
  13. MELATONIN [Concomitant]
     Active Substance: MELATONIN
  14. CETIRIZINE [Concomitant]
     Active Substance: CETIRIZINE HYDROCHLORIDE
  15. DIPHENHYDRAMINE. [Concomitant]
     Active Substance: DIPHENHYDRAMINE

REACTIONS (3)
  - Application site rash [None]
  - Pruritus [None]
  - Skin irritation [None]

NARRATIVE: CASE EVENT DATE: 20171102
